FAERS Safety Report 8460794-5 (Version None)
Quarter: 2012Q2

REPORT INFORMATION
  Report Type: 
  Country: None (occurrence: None)
  Receive Date: 20120623
  Receipt Date: 20120611
  Transmission Date: 20120825
  Serious: Yes (Other)
  Sender: FDA-Public Use
  Company Number: NL-TEVA-343393ISR

PATIENT
  Sex: Male

DRUGS (3)
  1. PERSANTINE [Concomitant]
  2. AMINOPYRIDINE [Concomitant]
  3. COPAXONE [Suspect]
     Indication: MULTIPLE SCLEROSIS
     Dosage: 20 MILLIGRAM;
     Route: 058
     Dates: start: 20080122

REACTIONS (2)
  - DIABETES MELLITUS [None]
  - TRANSIENT ISCHAEMIC ATTACK [None]
